FAERS Safety Report 17309270 (Version 1)
Quarter: 2020Q1

REPORT INFORMATION
  Report Type: Spontaneous
  Country: JP (occurrence: JP)
  Receive Date: 20200123
  Receipt Date: 20200123
  Transmission Date: 20200409
  Serious: No
  Sender: FDA-Public Use
  Company Number: JP-LUPIN PHARMACEUTICALS INC.-2019-00157

PATIENT
  Age: 83 Year
  Sex: Female
  Weight: 40.6 kg

DRUGS (2)
  1. MORPHINE [Suspect]
     Active Substance: MORPHINE
     Indication: IDIOPATHIC INTERSTITIAL PNEUMONIA
     Dosage: 02 MG, SINGLE (INJECTION)
     Route: 058
  2. MORPHINE [Suspect]
     Active Substance: MORPHINE
     Indication: DYSPNOEA

REACTIONS (2)
  - Off label use [Unknown]
  - Somnolence [Unknown]
